FAERS Safety Report 7451103-9 (Version None)
Quarter: 2011Q2

REPORT INFORMATION
  Report Type: 
  Country: None (occurrence: None)
  Receive Date: 20110502
  Receipt Date: 20110418
  Transmission Date: 20111010
  Serious: Yes (Other)
  Sender: FDA-Public Use
  Company Number: US-JNJFOC-20110408137

PATIENT
  Age: 50 Year
  Sex: Male
  Weight: 92.99 kg

DRUGS (3)
  1. LISTERINE TOTAL CARE ANTICAVITY MOUTHWASH [Suspect]
     Indication: DENTAL DISORDER PROPHYLAXIS
     Dosage: ONCE IN THE MORNING/ ONCE AT NIGHT
     Route: 048
  2. CRESTOR [Concomitant]
     Indication: BLOOD CHOLESTEROL INCREASED
     Route: 065
  3. TEKTURNA [Concomitant]
     Indication: HYPERTENSION
     Route: 065

REACTIONS (4)
  - ORAL DISCOMFORT [None]
  - HYPERSENSITIVITY [None]
  - OROPHARYNGEAL BLISTERING [None]
  - OEDEMA MOUTH [None]
